FAERS Safety Report 10234814 (Version 1)
Quarter: 2014Q1

REPORT INFORMATION
  Report Type: Spontaneous
  Country: US (occurrence: None)
  Receive Date: 20140306
  Receipt Date: 20140306
  Transmission Date: 20141002
  Serious: Yes (Other)
  Sender: FDA-Public Use
  Company Number: 163-21880-13050627

PATIENT
  Age: 71 Year
  Sex: Female
  Weight: 65.77 kg

DRUGS (9)
  1. REVLIMID (LENALIDOMIDE) (25 MILLIGRAM, CAPSULES) [Suspect]
     Indication: PLASMACYTOMA
     Route: 048
     Dates: start: 20110801
  2. AMBIEN (ZOLPIDEM TARTRATE) (UNKNOWN) [Concomitant]
  3. CALCITONIN SALMON (CALCITONIN, SALMON) (UNKNOWN) [Concomitant]
  4. CALCIUM (TABLETS) [Concomitant]
  5. CLINDAMYCIN PHOSPHATE (UNKNOWN) [Concomitant]
  6. ONDANSETRON ODT (ONDANSETRON HYDROCHLORIDE) (UNKNOWN) [Concomitant]
  7. VITAMIN D (ERGOCALCIFEROL) (UNKNOWN) [Concomitant]
  8. WOMENS DAILY MULTIVITAMIN (DAILY MULTIVITAMIN) (UNKNOWN) [Concomitant]
  9. ZOCOR (SIMVASTATIN) (TABLETS) [Concomitant]

REACTIONS (1)
  - Cataract [None]
